FAERS Safety Report 9242544 (Version 2)
Quarter: 2014Q2

REPORT INFORMATION
  Report Type: Report from Study
  Country: CA (occurrence: CA)
  Receive Date: 20130419
  Receipt Date: 20140523
  Transmission Date: 20141212
  Serious: Yes (Hospitalization)
  Sender: FDA-Public Use
  Company Number: CA-TEVA-363017USA

PATIENT
  Age: 63 Year
  Sex: Female
  Weight: 81 kg

DRUGS (7)
  1. TREANDA [Suspect]
     Indication: NON-HODGKIN^S LYMPHOMA
     Dosage: 8.1857  DAILY;
     Route: 042
     Dates: start: 20111020
  2. CIPROFLOXACIN [Concomitant]
     Dates: start: 20120126, end: 20120126
  3. PANTOPRAZOLE [Concomitant]
  4. PANTOLOC [Concomitant]
     Dates: start: 20120129, end: 20120205
  5. PANTOLOC [Concomitant]
  6. CODEINE [Concomitant]
     Dates: start: 20120129, end: 20120130
  7. TERCONAZOLE [Concomitant]
     Dates: start: 20120109, end: 20120115

REACTIONS (5)
  - Dysphagia [Recovered/Resolved]
  - Febrile neutropenia [Recovered/Resolved]
  - Chills [Recovered/Resolved]
  - Nausea [Recovered/Resolved]
  - Vomiting [Recovered/Resolved]
